FAERS Safety Report 16134594 (Version 1)
Quarter: 2019Q1

REPORT INFORMATION
  Report Type: Spontaneous
  Country: JP (occurrence: JP)
  Receive Date: 20190331
  Receipt Date: 20190331
  Transmission Date: 20190418
  Serious: Yes (Other)
  Sender: FDA-Public Use
  Company Number: PHHY2019JP073087

PATIENT
  Age: 54 Year
  Sex: Female

DRUGS (1)
  1. OXALIPLATIN. [Suspect]
     Active Substance: OXALIPLATIN
     Indication: METASTATIC GASTRIC CANCER
     Dosage: UNK
     Route: 065

REACTIONS (5)
  - Venous recanalisation [Unknown]
  - Venoocclusive liver disease [Unknown]
  - Venous occlusion [Unknown]
  - Splenomegaly [Unknown]
  - Product use in unapproved indication [Unknown]
